FAERS Safety Report 19919462 (Version 2)
Quarter: 2021Q4

REPORT INFORMATION
  Report Type: Spontaneous
  Country: US (occurrence: US)
  Receive Date: 20211004
  Receipt Date: 20211028
  Transmission Date: 20220304
  Serious: Yes (Other)
  Sender: FDA-Public Use
  Company Number: US-BLUEPRINT MEDICINES CORPORATION-SP-US-2021-001631

PATIENT
  Age: 10 Year
  Sex: Female

DRUGS (2)
  1. AYVAKIT [Suspect]
     Active Substance: AVAPRITINIB
     Indication: Brain neoplasm malignant
     Route: 048
     Dates: start: 20210705
  2. AYVAKIT [Suspect]
     Active Substance: AVAPRITINIB
     Route: 048
     Dates: start: 20210705

REACTIONS (7)
  - Metastases to central nervous system [Unknown]
  - Feeling abnormal [Unknown]
  - Fatigue [Unknown]
  - Off label use [Unknown]
  - Hair colour changes [Unknown]
  - Daydreaming [Unknown]
  - Memory impairment [Unknown]
